FAERS Safety Report 14929470 (Version 2)
Quarter: 2018Q2

REPORT INFORMATION
  Report Type: Report from Study
  Country: US (occurrence: US)
  Receive Date: 20180523
  Receipt Date: 20180605
  Transmission Date: 20180711
  Serious: Yes (Hospitalization, Other)
  Sender: FDA-Public Use
  Company Number: US-GILEAD-2018-0339944

PATIENT
  Age: 77 Year
  Sex: Female
  Weight: 64.9 kg

DRUGS (18)
  1. AMBRISENTAN [Suspect]
     Active Substance: AMBRISENTAN
     Dosage: 10 MG, QD
     Route: 048
  2. DELTASONE                          /00016001/ [Concomitant]
     Active Substance: DEXAMETHASONE
  3. FOSAMAX [Concomitant]
     Active Substance: ALENDRONATE SODIUM
  4. LINZESS [Concomitant]
     Active Substance: LINACLOTIDE
  5. VITAMIN D3 [Concomitant]
     Active Substance: CHOLECALCIFEROL
  6. AMBRISENTAN [Suspect]
     Active Substance: AMBRISENTAN
     Indication: PULMONARY ARTERIAL HYPERTENSION
     Dosage: 5 MG, QD
     Route: 048
     Dates: start: 20180410, end: 20180416
  7. XARELTO [Concomitant]
     Active Substance: RIVAROXABAN
  8. DEMADEX [Concomitant]
     Active Substance: TORSEMIDE
  9. ELIQUIS [Concomitant]
     Active Substance: APIXABAN
  10. FERROUS GLUCONATE [Concomitant]
     Active Substance: FERROUS GLUCONATE
  11. ADCIRCA [Concomitant]
     Active Substance: TADALAFIL
  12. LIPITOR [Concomitant]
     Active Substance: ATORVASTATIN CALCIUM
  13. TOPROL XL [Concomitant]
     Active Substance: METOPROLOL SUCCINATE
  14. OXYGEN. [Concomitant]
     Active Substance: OXYGEN
  15. ACIPHEX [Concomitant]
     Active Substance: RABEPRAZOLE SODIUM
  16. PACERONE [Concomitant]
     Active Substance: AMIODARONE HYDROCHLORIDE
  17. APRESOLINE HYDROCHLORIDE [Concomitant]
     Active Substance: HYDRALAZINE HYDROCHLORIDE
  18. DEMADEX [Concomitant]
     Active Substance: TORSEMIDE

REACTIONS (2)
  - Drug ineffective [Unknown]
  - Dyspnoea [Recovered/Resolved]
